FAERS Safety Report 8004040-5 (Version None)
Quarter: 2011Q4

REPORT INFORMATION
  Report Type: 
  Country: None (occurrence: None)
  Receive Date: 20111222
  Receipt Date: 20111216
  Transmission Date: 20120403
  Serious: Yes (Hospitalization, Other)
  Sender: FDA-Public Use
  Company Number: US-MERCK-1105USA02543

PATIENT
  Age: 65 Year
  Sex: Male
  Weight: 88 kg

DRUGS (6)
  1. FOSAMAX [Suspect]
     Indication: OSTEOPOROSIS
     Route: 048
     Dates: start: 19970604, end: 20060503
  2. FOSAMAX [Suspect]
     Route: 048
     Dates: start: 20060501
  3. LOVENOX [Concomitant]
     Indication: PULMONARY EMBOLISM
     Route: 065
  4. COUMADIN [Concomitant]
     Indication: PULMONARY EMBOLISM
     Route: 065
  5. XANAX [Concomitant]
     Indication: PANIC ATTACK
     Route: 065
  6. EFFEXOR [Concomitant]
     Indication: PANIC ATTACK
     Route: 065

REACTIONS (60)
  - LUNG ABSCESS [None]
  - THROMBOSIS [None]
  - FALL [None]
  - ASTHENIA [None]
  - PERIODONTITIS [None]
  - HAEMORRHOIDS [None]
  - BLEPHAROCHALASIS [None]
  - MYOCARDIAL ISCHAEMIA [None]
  - PULMONARY MASS [None]
  - PNEUMONIA [None]
  - HYPERTHYROIDISM [None]
  - SPINAL DISORDER [None]
  - BACK DISORDER [None]
  - DRY MOUTH [None]
  - RIB FRACTURE [None]
  - BALANCE DISORDER [None]
  - BONE LOSS [None]
  - THROMBOCYTOSIS [None]
  - RENAL FAILURE CHRONIC [None]
  - PULMONARY CONGESTION [None]
  - ORAL CANDIDIASIS [None]
  - EAR PAIN [None]
  - OROPHARYNGEAL PAIN [None]
  - CHEST PAIN [None]
  - CONFUSIONAL STATE [None]
  - PULMONARY EMBOLISM [None]
  - GASTROOESOPHAGEAL REFLUX DISEASE [None]
  - GALLBLADDER DISORDER [None]
  - BLOOD DISORDER [None]
  - TOOTH FRACTURE [None]
  - TOOTH DISORDER [None]
  - DENTAL CARIES [None]
  - ACUTE PRERENAL FAILURE [None]
  - DEMENTIA [None]
  - FEMUR FRACTURE [None]
  - BENIGN PROSTATIC HYPERPLASIA [None]
  - PULMONARY HYPERTENSION [None]
  - CEREBROVASCULAR ACCIDENT [None]
  - COLONIC POLYP [None]
  - OSTEOPENIA [None]
  - INJURY [None]
  - OSTEONECROSIS OF JAW [None]
  - RENAL FAILURE ACUTE [None]
  - HYPERKALAEMIA [None]
  - ATRIAL TACHYCARDIA [None]
  - IRON DEFICIENCY ANAEMIA [None]
  - HYPOALBUMINAEMIA [None]
  - ANXIETY [None]
  - URINARY INCONTINENCE [None]
  - HYPERTRIGLYCERIDAEMIA [None]
  - ARTHRITIS [None]
  - AZOTAEMIA [None]
  - GASTRITIS [None]
  - RED BLOOD CELL SEDIMENTATION RATE INCREASED [None]
  - DEHYDRATION [None]
  - STAPHYLOCOCCAL INFECTION [None]
  - SPINAL COLUMN STENOSIS [None]
  - LACERATION [None]
  - EYELID PTOSIS [None]
  - CARDIAC DISORDER [None]
